FAERS Safety Report 9888975 (Version 1)
Quarter: 2014Q1

REPORT INFORMATION
  Report Type: Spontaneous
  Country: US (occurrence: US)
  Receive Date: 20140211
  Receipt Date: 20140211
  Transmission Date: 20141002
  Serious: No
  Sender: FDA-Public Use
  Company Number: US-BAXTER-2014BAX004251

PATIENT
  Sex: Female
  Weight: 53 kg

DRUGS (4)
  1. CYCLOPHOSPHAMIDE FOR INJECTION, USP [Suspect]
     Indication: BREAST CANCER
     Route: 042
     Dates: start: 20131202
  2. CYCLOPHOSPHAMIDE FOR INJECTION, USP [Suspect]
     Route: 042
     Dates: start: 20131223
  3. CYCLOPHOSPHAMIDE FOR INJECTION, USP [Suspect]
     Route: 042
     Dates: start: 20140114
  4. NEULASTA [Concomitant]
     Indication: WHITE BLOOD CELL COUNT INCREASED
     Route: 030
     Dates: start: 20131203

REACTIONS (3)
  - Pruritus [Recovered/Resolved]
  - Pruritus [Not Recovered/Not Resolved]
  - Rash [Not Recovered/Not Resolved]
